FAERS Safety Report 6014524-7 (Version None)
Quarter: 2008Q4

REPORT INFORMATION
  Report Type: 
  Country: None (occurrence: None)
  Receive Date: 20081219
  Receipt Date: 20080829
  Transmission Date: 20090506
  Serious: No
  Sender: FDA-Public Use
  Company Number: A0740719A

PATIENT
  Age: 77 Year
  Sex: Male
  Weight: 84.5 kg

DRUGS (9)
  1. AVODART [Suspect]
     Route: 048
     Dates: start: 20071201, end: 20080101
  2. LIPITOR [Concomitant]
  3. LOPRESSOR [Concomitant]
  4. ZETIA [Concomitant]
  5. FLOMAX [Concomitant]
  6. HYDROCHLOROTHIAZIDE [Concomitant]
  7. ACTOS [Concomitant]
  8. FOLIC ACID [Concomitant]
  9. ATIVAN [Concomitant]

REACTIONS (2)
  - BREAST TENDERNESS [None]
  - GYNAECOMASTIA [None]
